FAERS Safety Report 18905789 (Version 2)
Quarter: 2021Q1

REPORT INFORMATION
  Report Type: Spontaneous
  Country: FR (occurrence: FR)
  Receive Date: 20210217
  Receipt Date: 20210301
  Transmission Date: 20210420
  Serious: No
  Sender: FDA-Public Use
  Company Number: FR-009507513-2012FRA009462

PATIENT

DRUGS (4)
  1. DARUNAVIR [Suspect]
     Active Substance: DARUNAVIR
     Dosage: 600 MILLIGRAM, TWICE DAILY
     Route: 048
  2. RITONAVIR. [Suspect]
     Active Substance: RITONAVIR
     Dosage: 100 MILLIGRAM, TWICE A DAY
     Route: 048
  3. ETRAVIRINE [Suspect]
     Active Substance: ETRAVIRINE
     Dosage: 200 MILLIGRAM, TWICE DAILY
     Route: 048
  4. RALTEGRAVIR POTASSIUM [Suspect]
     Active Substance: RALTEGRAVIR POTASSIUM
     Dosage: 400 MILLIGRAM, TWICE A DAY
     Route: 048

REACTIONS (1)
  - Treatment failure [Unknown]
